FAERS Safety Report 8758275 (Version 1)
Quarter: 2012Q4

REPORT INFORMATION
  Report Type: Spontaneous
  Country: US (occurrence: None)
  Receive Date: 20120828
  Receipt Date: 20120828
  Transmission Date: 20130627
  Serious: Yes (Life-Threatening, Hospitalization)
  Sender: FDA-Public Use
  Company Number: None

PATIENT
  Age: 60 Year
  Sex: Male
  Weight: 94 kg

DRUGS (2)
  1. TRUVADA [Suspect]
     Indication: HIV INFECTION
     Dosage: 1 tablet daily po
     Route: 048
     Dates: start: 20110728, end: 20120816
  2. METFORMIN [Suspect]
     Indication: TYPE II DIABETES MELLITUS
     Dosage: 2 tablets twice daily po
greater than 1 year
     Route: 048

REACTIONS (6)
  - Renal failure acute [None]
  - Lactic acidosis [None]
  - Dialysis [None]
  - Dehydration [None]
  - Enterococcus test positive [None]
  - White blood cell count increased [None]
